FAERS Safety Report 7331949-8 (Version None)
Quarter: 2011Q1

REPORT INFORMATION
  Report Type: 
  Country: None (occurrence: None)
  Receive Date: 20110304
  Receipt Date: 20110222
  Transmission Date: 20110831
  Serious: Yes (Hospitalization)
  Sender: FDA-Public Use
  Company Number: US-ELI_LILLY_AND_COMPANY-US201102006944

PATIENT
  Sex: Female
  Weight: 67.347 kg

DRUGS (11)
  1. FLOMAX [Concomitant]
     Indication: URINARY RETENTION
     Dosage: 0.5 MG, DAILY (1/D)
     Route: 048
     Dates: start: 20110110
  2. FUROSEMIDE [Concomitant]
     Indication: CARDIAC FAILURE CONGESTIVE
     Dosage: 40 MG, DAILY (1/D)
     Route: 048
     Dates: start: 20110105
  3. METFORMIN [Concomitant]
     Indication: DIABETES MELLITUS
     Dosage: 500 MG, 2/D
     Route: 048
     Dates: start: 20110105
  4. PREDNISONE [Concomitant]
     Indication: INFLAMMATION
     Dosage: 5 MG, DAILY (1/D)
     Route: 048
     Dates: start: 20110105
  5. ASPIRIN [Concomitant]
     Dosage: 81 MG, DAILY (1/D)
     Dates: start: 20110104
  6. GLYBURIDE [Concomitant]
     Indication: DIABETES MELLITUS
     Dosage: 500 MG, 2/D
     Route: 048
     Dates: start: 20110105
  7. TOPROL-XL [Concomitant]
     Indication: ANGINA PECTORIS
     Dosage: 200 MG, DAILY (1/D)
     Route: 048
     Dates: start: 20110105
  8. AMITRIPTYLINE [Concomitant]
     Indication: DEPRESSION
     Dosage: 70 MG, OTHER
     Route: 048
     Dates: start: 20110105
  9. PRASUGREL HYDROCHLORIDE [Suspect]
     Indication: ACUTE CORONARY SYNDROME
     Dosage: 5 MG, DAILY (1/D)
     Dates: start: 20110104
  10. COLESEVELAM [Concomitant]
     Indication: HYPERLIPIDAEMIA
     Dosage: 625 MG, 3/D
     Route: 048
     Dates: start: 20110105
  11. LISINOPRIL [Concomitant]
     Indication: HYPERTENSION
     Dosage: 40 MG, DAILY (1/D)
     Route: 048
     Dates: start: 20110105

REACTIONS (3)
  - VOMITING [None]
  - NAUSEA [None]
  - RESPIRATORY DISTRESS [None]
